FAERS Safety Report 16199346 (Version 4)
Quarter: 2019Q3

REPORT INFORMATION
  Report Type: Spontaneous
  Country: US (occurrence: US)
  Receive Date: 20190415
  Receipt Date: 20190916
  Transmission Date: 20191004
  Serious: Yes (Other)
  Sender: FDA-Public Use
  Company Number: US-PFIZER INC-2019160627

PATIENT
  Age: 8 Year
  Sex: Male
  Weight: 26.1 kg

DRUGS (1)
  1. RAPAMUNE [Suspect]
     Active Substance: SIROLIMUS
     Indication: VASCULAR MALFORMATION
     Dosage: 1.5 MG, DAILY (2 TABLETS IN THE MORNING AND 1 TABLET IN THE EVENING DAILY)
     Route: 048
     Dates: start: 201509

REACTIONS (9)
  - Neoplasm progression [Unknown]
  - Mobility decreased [Recovering/Resolving]
  - Phlebitis [Unknown]
  - Fibrin D dimer increased [Recovering/Resolving]
  - Off label use [Unknown]
  - Product dose omission [Unknown]
  - Swelling [Unknown]
  - Pain [Not Recovered/Not Resolved]
  - Product use in unapproved indication [Unknown]

NARRATIVE: CASE EVENT DATE: 201509
